FAERS Safety Report 4527914-6 (Version None)
Quarter: 2004Q4

REPORT INFORMATION
  Report Type: 
  Country: None (occurrence: None)
  Receive Date: 20041122
  Receipt Date: 20040813
  Transmission Date: 20050328
  Serious: No
  Sender: FDA-Public Use
  Company Number: 2004S1000044

PATIENT
  Age: 49 Year
  Sex: Male
  Weight: 90.7194 kg

DRUGS (8)
  1. DELATESTRYL [Suspect]
     Indication: BLOOD TESTOSTERONE DECREASED
     Dosage: 200 MG;QOW;IM; 200 MG;IM
     Dates: start: 20010101, end: 20020101
  2. DELATESTRYL [Suspect]
     Indication: BLOOD TESTOSTERONE DECREASED
     Dosage: 200 MG;QOW;IM; 200 MG;IM
     Dates: start: 20030101, end: 20040101
  3. LIBRIUM ^HOFFMAN^ [Concomitant]
  4. LIPITOR [Concomitant]
  5. ZANTAC [Concomitant]
  6. TOPROL-XL [Concomitant]
  7. VICODIN [Concomitant]
  8. PREDNISONE [Concomitant]

REACTIONS (8)
  - ARTHRALGIA [None]
  - ASTHENIA [None]
  - DEPRESSION [None]
  - DYSPNOEA [None]
  - LETHARGY [None]
  - LOSS OF LIBIDO [None]
  - POLYCYTHAEMIA VERA [None]
  - WEIGHT INCREASED [None]
